FAERS Safety Report 8239858-7 (Version None)
Quarter: 2012Q1

REPORT INFORMATION
  Report Type: 
  Country: None (occurrence: None)
  Receive Date: 20120328
  Receipt Date: 20120321
  Transmission Date: 20120608
  Serious: Yes (Other)
  Sender: FDA-Public Use
  Company Number: PHEH2012US005609

PATIENT
  Sex: Male

DRUGS (4)
  1. GLEEVEC [Suspect]
     Indication: CHRONIC MYELOID LEUKAEMIA
     Dosage: 400 MG, DAILY
     Route: 048
     Dates: start: 20091001
  2. TRAMADOL HCL [Concomitant]
  3. MORPHINE [Concomitant]
  4. FLOMAX [Concomitant]

REACTIONS (6)
  - NEOPLASM MALIGNANT [None]
  - HEPATITIS B [None]
  - HEPATITIS C [None]
  - ARTHRITIS [None]
  - PROSTATE CANCER [None]
  - FOOT FRACTURE [None]
